FAERS Safety Report 13625485 (Version 1)
Quarter: 2017Q2

REPORT INFORMATION
  Report Type: Spontaneous
  Country: US (occurrence: US)
  Receive Date: 20170608
  Receipt Date: 20170608
  Transmission Date: 20170830
  Serious: No
  Sender: FDA-Public Use
  Company Number: US-DRREDDYS-DRL/USA/16/0079804

PATIENT
  Sex: Male

DRUGS (1)
  1. FEXOFENADINE HCL [Suspect]
     Active Substance: FEXOFENADINE HYDROCHLORIDE
     Indication: HYPERSENSITIVITY
     Dosage: HALF A TABLET AS NEEDED
     Route: 048

REACTIONS (3)
  - Somnolence [Not Recovered/Not Resolved]
  - Wrong technique in product usage process [Unknown]
  - Dysphagia [Not Recovered/Not Resolved]
